FAERS Safety Report 5951809-4 (Version None)
Quarter: 2008Q4

REPORT INFORMATION
  Report Type: 
  Country: None (occurrence: None)
  Receive Date: 20081113
  Receipt Date: 20081110
  Transmission Date: 20090506
  Serious: Yes (Other)
  Sender: FDA-Public Use
  Company Number: A0755652A

PATIENT
  Age: 41 Year
  Sex: Female

DRUGS (4)
  1. AMOXIL [Suspect]
     Indication: PHARYNGITIS
     Dosage: 500MG THREE TIMES PER DAY
     Route: 048
     Dates: start: 20081025, end: 20081103
  2. ESOMEPRAZOLE MAGNESIUM [Concomitant]
     Dosage: 40MG PER DAY
     Dates: start: 20081025
  3. CHLORMADINONE ACETATE TAB [Concomitant]
     Dates: start: 20060101
  4. ETHINYL ESTRADIOL TAB [Concomitant]
     Dates: start: 20060101

REACTIONS (4)
  - ABDOMINAL PAIN [None]
  - ARTHRALGIA [None]
  - ERYTHEMA [None]
  - PRURITUS [None]
